FAERS Safety Report 15206246 (Version 2)
Quarter: 2018Q4

REPORT INFORMATION
  Report Type: Report from Study
  Country: IT (occurrence: IT)
  Receive Date: 20180727
  Receipt Date: 20180730
  Transmission Date: 20190204
  Serious: Yes (Other)
  Sender: FDA-Public Use
  Company Number: IT-TEVA-2018-IT-931109

PATIENT
  Age: 27 Year
  Sex: Female

DRUGS (3)
  1. RIVOTRIL [Concomitant]
     Active Substance: CLONAZEPAM
  2. LEVETIRACETAM. [Suspect]
     Active Substance: LEVETIRACETAM
     Indication: GENERALISED NON-CONVULSIVE EPILEPSY
     Dosage: 3 GRAM DAILY;
     Route: 048
  3. GARDENALE 100 MG COMPRESSE [Suspect]
     Active Substance: PHENOBARBITAL
     Indication: GENERALISED NON-CONVULSIVE EPILEPSY
     Dosage: 100 MILLIGRAM DAILY;
     Route: 048

REACTIONS (2)
  - Seizure [Recovering/Resolving]
  - Dyspnoea [Recovering/Resolving]

NARRATIVE: CASE EVENT DATE: 20180428
